FAERS Safety Report 7241352-7 (Version None)
Quarter: 2011Q1

REPORT INFORMATION
  Report Type: 
  Country: None (occurrence: None)
  Receive Date: 20110120
  Receipt Date: 20110120
  Transmission Date: 20110831
  Serious: Yes (Life-Threatening)
  Sender: FDA-Public Use
  Company Number: None

PATIENT
  Age: 38 Year
  Sex: Male
  Weight: 110.2241 kg

DRUGS (1)
  1. TESTIM [Suspect]
     Indication: HORMONE REPLACEMENT THERAPY
     Dosage: 5G ONCE PER DAY TOP
     Route: 061
     Dates: start: 20101101, end: 20101217

REACTIONS (3)
  - DECREASED ACTIVITY [None]
  - THROMBOSIS [None]
  - MUSCLE SPASMS [None]
